FAERS Safety Report 9304887 (Version 3)
Quarter: 2013Q2

REPORT INFORMATION
  Report Type: Spontaneous
  Country: FR (occurrence: FR)
  Receive Date: 20130523
  Receipt Date: 20130626
  Transmission Date: 20140414
  Serious: Yes (Hospitalization, Other)
  Sender: FDA-Public Use
  Company Number: FR-VERTEX PHARMACEUTICALS INC-2013-006307

PATIENT
  Age: 46 Year
  Sex: Male

DRUGS (3)
  1. INCIVO [Suspect]
     Indication: HEPATITIS C
     Dosage: 3 TABLETS (3X750MG) TWICE A DAY
     Route: 048
     Dates: start: 20130325, end: 20130408
  2. COPEGUS [Concomitant]
     Indication: HEPATITIS C
     Dosage: DOSAGE FORM: TABLET
     Route: 065
  3. PEGASYS [Concomitant]
     Indication: HEPATITIS C
     Dosage: DOSAGE FORM: SOLUTION FOR INJECTION
     Route: 058
     Dates: start: 20130401

REACTIONS (5)
  - Rash generalised [Recovered/Resolved]
  - Pruritus [Recovered/Resolved]
  - Gout [Recovered/Resolved]
  - Headache [Recovered/Resolved]
  - Off label use [Unknown]
